FAERS Safety Report 4553767-6 (Version None)
Quarter: 2005Q1

REPORT INFORMATION
  Report Type: 
  Country: None (occurrence: None)
  Receive Date: 20050113
  Receipt Date: 20050113
  Transmission Date: 20050727
  Serious: Yes (Other)
  Sender: FDA-Public Use
  Company Number: None

PATIENT
  Sex: Male
  Weight: 95.2554 kg

DRUGS (7)
  1. ALLOPURINOL TAB [Suspect]
     Indication: GOUT
     Dosage: 1 TABLET DAILY
     Dates: end: 20041228
  2. HYDROCHLOROTHIAZIDE [Concomitant]
  3. ACCUPRIL [Concomitant]
  4. INDOMETHACIN [Concomitant]
  5. VITAMIN C [Concomitant]
  6. ZINC [Concomitant]
  7. ASPIRIN [Concomitant]

REACTIONS (4)
  - HEADACHE [None]
  - MUSCULOSKELETAL STIFFNESS [None]
  - NECK PAIN [None]
  - RASH ERYTHEMATOUS [None]
